FAERS Safety Report 22331340 (Version 1)
Quarter: 2023Q2

REPORT INFORMATION
  Report Type: Spontaneous
  Country: US (occurrence: None)
  Receive Date: 20230515
  Receipt Date: 20230515
  Transmission Date: 20230722
  Serious: No
  Sender: FDA-Public Use
  Company Number: None

PATIENT
  Age: 46 Year
  Sex: Male
  Weight: 79.65 kg

DRUGS (5)
  1. ESTRADIOL TRANSDERMAL SYSTEM [Suspect]
     Active Substance: ESTRADIOL
     Indication: Gender dysphoria
     Dosage: OTHER QUANTITY : 8 PATCH(ES);?OTHER FREQUENCY : 2X A WEEK;?
     Route: 062
     Dates: start: 20230417, end: 20230515
  2. orilissa 100 mg po qhs [Concomitant]
  3. estradiol transdermal system 100 mcg apply 2 patches 2x per week [Concomitant]
  4. viviscal hair supplement [Concomitant]
  5. topical minoxidil [Concomitant]

REACTIONS (7)
  - Drug ineffective [None]
  - Product substitution issue [None]
  - Product adhesion issue [None]
  - Fatigue [None]
  - Hot flush [None]
  - Night sweats [None]
  - Drug level abnormal [None]

NARRATIVE: CASE EVENT DATE: 20230508
